FAERS Safety Report 4277888-0 (Version None)
Quarter: 2004Q1

REPORT INFORMATION
  Report Type: 
  Country: None (occurrence: None)
  Receive Date: 20040114
  Receipt Date: 20031229
  Transmission Date: 20041129
  Serious: Yes (Hospitalization, Other)
  Sender: FDA-Public Use
  Company Number: 230550

PATIENT
  Age: 60 Year
  Sex: Male
  Weight: 93 kg

DRUGS (17)
  1. NOVOSEVEN [Suspect]
     Indication: LIVER DISORDER
     Dosage: 60 UG/KG X 3 DOSES, INTRAVENOUS
     Route: 042
     Dates: start: 20030717, end: 20030717
  2. VANCOMYCIN [Concomitant]
  3. CEFTRIAXONE [Concomitant]
  4. AZATHIOPRINET TABL [Concomitant]
  5. RANITIDINE [Concomitant]
  6. FOLIC ACID [Concomitant]
  7. PHYTONADIONE [Concomitant]
  8. HEPARIN [Concomitant]
  9. METHYLPREDNISOLONE [Concomitant]
  10. PREDNISOLONE [Concomitant]
  11. NILSTAT (NYSTATIN) [Concomitant]
  12. MUPIROCIN  CREAM [Concomitant]
  13. TRICLOSAN ALTERNATIVE [Concomitant]
  14. ACTRAPID (INSULIN HUMAN) SOLUTION FOR INJECTION [Concomitant]
  15. NORADRENALINE (NOREPINEPHRINE) [Concomitant]
  16. METOCLOPRAMIDE [Concomitant]
  17. AMIODARONE HCL [Concomitant]

REACTIONS (8)
  - ABDOMINAL PAIN [None]
  - ASCITES [None]
  - ENTEROCOCCAL INFECTION [None]
  - HEART RATE INCREASED [None]
  - HYPOTENSION [None]
  - INTERNATIONAL NORMALISED RATIO INCREASED [None]
  - PLEURAL EFFUSION [None]
  - PORTAL VEIN THROMBOSIS [None]
